FAERS Safety Report 8790570 (Version 1)
Quarter: 2012Q4

REPORT INFORMATION
  Report Type: Spontaneous
  Country: US (occurrence: None)
  Receive Date: 20120912
  Receipt Date: 20120912
  Transmission Date: 20130627
  Serious: No
  Sender: FDA-Public Use
  Company Number: None

PATIENT
  Age: 0 Day
  Sex: Female
  Weight: 49.9 kg

DRUGS (1)
  1. BENZONATATE [Suspect]
     Indication: COUGH
     Dosage: 200 mg asc 106 every 8 hours
     Dates: start: 20120726, end: 20120727

REACTIONS (3)
  - Rash [None]
  - Pruritus [None]
  - Skin reaction [None]
